FAERS Safety Report 11009919 (Version 1)
Quarter: 2015Q2

REPORT INFORMATION
  Report Type: Spontaneous
  Country: US (occurrence: US)
  Receive Date: 20150410
  Receipt Date: 20150410
  Transmission Date: 20150821
  Serious: Yes (Hospitalization)
  Sender: FDA-Public Use
  Company Number: US-ASTRAZENECA-2015SE32855

PATIENT
  Age: 78 Year
  Sex: Male
  Weight: 77.1 kg

DRUGS (3)
  1. BYETTA [Suspect]
     Active Substance: EXENATIDE
     Indication: TYPE 2 DIABETES MELLITUS
     Dosage: 250 MCG / 2.4 ML
     Route: 058
  2. WATER PILLS [Concomitant]
     Active Substance: UNSPECIFIED INGREDIENT
  3. BYETTA [Suspect]
     Active Substance: EXENATIDE
     Indication: TYPE 2 DIABETES MELLITUS
     Route: 058

REACTIONS (6)
  - Blood sodium increased [Unknown]
  - Generalised oedema [Unknown]
  - Cardiomyopathy [Unknown]
  - Blood glucose increased [Unknown]
  - Weight decreased [Unknown]
  - Injection site haemorrhage [Unknown]

NARRATIVE: CASE EVENT DATE: 2013
